FAERS Safety Report 7570962-2 (Version None)
Quarter: 2011Q2

REPORT INFORMATION
  Report Type: 
  Country: None (occurrence: None)
  Receive Date: 20110622
  Receipt Date: 20110622
  Transmission Date: 20111010
  Serious: No
  Sender: FDA-Public Use
  Company Number: None

PATIENT
  Sex: Female

DRUGS (2)
  1. ATENOLOL [Suspect]
  2. FUROSEMIDE [Suspect]

REACTIONS (1)
  - REACTION TO DRUG EXCIPIENTS [None]
